FAERS Safety Report 7652223-6 (Version None)
Quarter: 2011Q3

REPORT INFORMATION
  Report Type: 
  Country: None (occurrence: None)
  Receive Date: 20110803
  Receipt Date: 20110727
  Transmission Date: 20111222
  Serious: Yes (Hospitalization, Other)
  Sender: FDA-Public Use
  Company Number: US-BAYER-201038795NA

PATIENT
  Age: 35 Year
  Sex: Female
  Weight: 100 kg

DRUGS (4)
  1. AMOXICILLIN [Concomitant]
     Route: 048
  2. DROSPIRENONE AND ETHINYL ESTRADIOL [Suspect]
     Dosage: UNK
     Route: 048
     Dates: start: 20090413, end: 20091130
  3. PHENERGAN HCL [Concomitant]
     Route: 048
  4. DARVOCET [Concomitant]
     Route: 048

REACTIONS (6)
  - GALLBLADDER INJURY [None]
  - CHOLECYSTITIS CHRONIC [None]
  - SCAR [None]
  - EMOTIONAL DISTRESS [None]
  - PAIN [None]
  - MENTAL DISORDER [None]
